FAERS Safety Report 8543651-5 (Version None)
Quarter: 2012Q3

REPORT INFORMATION
  Report Type: 
  Country: None (occurrence: None)
  Receive Date: 20120727
  Receipt Date: 20090620
  Transmission Date: 20120928
  Serious: Yes (Other)
  Sender: FDA-Public Use
  Company Number: CO-PFIZER INC-2012180159

PATIENT
  Age: 74 Year
  Sex: Female

DRUGS (4)
  1. ACETYLSALICYLIC ACID [Concomitant]
     Dosage: 100 MG,EVERY 24 HOURS
  2. OLMESARTAN MEDOXOMIL AND HYDROCHLOROTHIZIDE [Suspect]
     Dosage: [OLMESARTAN MEDOXOMIL 20 MG]/[HYDROCHLOROTHIAZIDE 12.5 MG], EVERY 24 HOURS
  3. METOPROLOL [Concomitant]
     Dosage: 50 MG, 4X/DAY
  4. NORVASC [Suspect]
     Dosage: 10 MG, EVERY 24 HOURS

REACTIONS (1)
  - DYSPNOEA EXERTIONAL [None]
